FAERS Safety Report 9427902 (Version 2)
Quarter: 2013Q3

REPORT INFORMATION
  Report Type: Spontaneous
  Country: JP (occurrence: JP)
  Receive Date: 20130730
  Receipt Date: 20130807
  Transmission Date: 20140515
  Serious: Yes (Death, Other)
  Sender: FDA-Public Use
  Company Number: JP-PFIZER INC-2013221299

PATIENT
  Sex: Female

DRUGS (5)
  1. SOLANAX [Suspect]
     Indication: DEPRESSION
     Dosage: 0.4 MG, UNK
     Route: 048
  2. TOLEDOMIN [Suspect]
     Indication: DEPRESSION
     Dosage: 15 MG, UNK
     Route: 048
  3. ANAFRANIL [Suspect]
     Indication: DEPRESSION
     Dosage: 50 MG, UNK
     Route: 048
  4. EFFORTIL [Concomitant]
     Dosage: 10 MG, UNK
     Route: 048
  5. AKINETON [Concomitant]
     Dosage: 1 MG, UNK
     Route: 048

REACTIONS (5)
  - Overdose [Fatal]
  - Completed suicide [Fatal]
  - Toxicity to various agents [Unknown]
  - Drowning [Unknown]
  - Somnolence [Unknown]
